FAERS Safety Report 14044787 (Version 11)
Quarter: 2019Q3

REPORT INFORMATION
  Report Type: Report from Study
  Country: DE (occurrence: DE)
  Receive Date: 20171005
  Receipt Date: 20190712
  Transmission Date: 20191004
  Serious: Yes (Hospitalization)
  Sender: FDA-Public Use
  Company Number: DE-ROCHE-2002894

PATIENT
  Age: 71 Year
  Sex: Male
  Weight: 56.8 kg

DRUGS (29)
  1. ACETYLSALICYLIC ACID [Concomitant]
     Active Substance: ASPIRIN
     Dosage: PERIPHERE ARTERIELLE VERSCHLUSSKRANKHEIT
     Route: 065
  2. PALLADON [Concomitant]
     Active Substance: HYDROMORPHONE
     Indication: MUSCULOSKELETAL PAIN
     Dosage: PALLADON RETARD
     Route: 065
     Dates: start: 20161031
  3. ATEZOLIZUMAB. [Suspect]
     Active Substance: ATEZOLIZUMAB
     Indication: NON-SMALL CELL LUNG CANCER STAGE IV
     Dosage: DATE OF MOST RECENT DOSE (1200 MG) OF ATEZOLIZUMAB PRIOR TO GASTRITIS: 18/SEP/2017?MOST RECENT DOSE
     Route: 042
     Dates: start: 20161114
  4. NOVALGIN (METAMIZOLE SODIUM) [Concomitant]
     Active Substance: METAMIZOLE SODIUM
     Indication: PAIN
     Route: 065
     Dates: start: 20170818
  5. TAVOR (LORAZEPAM) [Concomitant]
     Active Substance: LORAZEPAM
     Indication: DEPRESSION
     Route: 065
     Dates: start: 20161114, end: 20161119
  6. BEVACIZUMAB. [Suspect]
     Active Substance: BEVACIZUMAB
     Indication: NON-SMALL CELL LUNG CANCER STAGE IV
     Dosage: DATE OF MOST RECENT DOSE (930 MG) OF BEVACIZUMAB PRIOR TO GASTRITIS: 18/SEP/2017?DATE OF MOST RECENT
     Route: 042
     Dates: start: 20161114
  7. METOCLOPRAMID [METOCLOPRAMIDE] [Concomitant]
     Active Substance: METOCLOPRAMIDE
     Route: 065
     Dates: start: 20161104, end: 20161104
  8. DELIX [RAMIPRIL] [Concomitant]
     Indication: CARDIOVASCULAR EVENT PROPHYLAXIS
  9. PACLITAXEL. [Suspect]
     Active Substance: PACLITAXEL
     Indication: NON-SMALL CELL LUNG CANCER STAGE IV
     Dosage: DAY 1 OF EACH 21-DAY CYCLE FOR 4 OR 6 CYCLES?DATE OF MOST RECENT DOSE (352 MG) PRIOR TO SAE ONSET: 1
     Route: 042
     Dates: start: 20161114
  10. OMNIC [Concomitant]
     Active Substance: TAMSULOSIN HYDROCHLORIDE
     Indication: BENIGN PROSTATIC HYPERPLASIA
  11. LITALIR [Concomitant]
     Active Substance: HYDROXYUREA
     Indication: PRODUCT USED FOR UNKNOWN INDICATION
  12. LOPERAMID [Concomitant]
     Active Substance: LOPERAMIDE
     Indication: DIARRHOEA
     Dosage: IF REQUIRED
     Route: 065
     Dates: start: 20161114
  13. METOCLOPRAMID [METOCLOPRAMIDE] [Concomitant]
     Active Substance: METOCLOPRAMIDE
     Route: 065
     Dates: start: 20171012, end: 20171214
  14. GRANISETRON [Concomitant]
     Active Substance: GRANISETRON
     Indication: WEIGHT DECREASED
     Route: 065
     Dates: start: 20161215, end: 20161215
  15. RANITIDIN [Concomitant]
     Active Substance: RANITIDINE HYDROCHLORIDE
     Indication: DUODENAL ULCER
     Route: 065
     Dates: start: 20161114, end: 20161114
  16. LYRICA [Concomitant]
     Active Substance: PREGABALIN
     Indication: PROPHYLAXIS
     Route: 065
     Dates: start: 20161109, end: 20161128
  17. RAMIPRIL. [Concomitant]
     Active Substance: RAMIPRIL
     Indication: HYPERTENSION
     Route: 065
  18. METOCLOPRAMID [METOCLOPRAMIDE] [Concomitant]
     Active Substance: METOCLOPRAMIDE
     Indication: NAUSEA
     Route: 065
     Dates: start: 20161118
  19. ZOPICLON [Concomitant]
     Active Substance: ZOPICLONE
     Indication: SLEEP DISORDER
     Route: 065
     Dates: start: 20161114, end: 20161114
  20. CARBOPLATIN. [Suspect]
     Active Substance: CARBOPLATIN
     Indication: NON-SMALL CELL LUNG CANCER STAGE IV
     Dosage: AREA UNDER THE CONCENTRATION-TIME CURVE (AUC) 6 MILLIGRAMS PER MILLILITER PER MINUTE (MG/ML/MIN) ON
     Route: 042
     Dates: start: 20161114
  21. NOVAMINSULFON [Concomitant]
     Active Substance: METAMIZOLE
     Indication: MUSCULOSKELETAL PAIN
     Route: 065
     Dates: start: 20161109
  22. VOMEX A [Concomitant]
     Active Substance: DIMENHYDRINATE
     Indication: NAUSEA
     Route: 065
     Dates: start: 20170818
  23. VOMEX A [Concomitant]
     Active Substance: DIMENHYDRINATE
     Route: 065
     Dates: start: 20170125, end: 20170125
  24. CLEMASTIN [Concomitant]
     Active Substance: CLEMASTINE
     Route: 065
     Dates: start: 20161114, end: 20161114
  25. GRANISETRON [Concomitant]
     Active Substance: GRANISETRON
     Indication: NAUSEA
     Route: 065
     Dates: start: 20161114, end: 20161114
  26. GRANISETRON [Concomitant]
     Active Substance: GRANISETRON
     Route: 065
     Dates: start: 20171214
  27. RANITIDIN [Concomitant]
     Active Substance: RANITIDINE HYDROCHLORIDE
     Route: 065
     Dates: start: 20170927
  28. CLEXANE [Concomitant]
     Active Substance: ENOXAPARIN SODIUM
     Indication: PROPHYLAXIS
     Route: 065
     Dates: start: 20161109, end: 20161123
  29. MACROGOL [Concomitant]
     Active Substance: POLYETHYLENE GLYCOLS
     Indication: CONSTIPATION
     Route: 065
     Dates: start: 20161220, end: 20170228

REACTIONS (4)
  - Colitis [Not Recovered/Not Resolved]
  - Gastritis [Not Recovered/Not Resolved]
  - Prerenal failure [Recovering/Resolving]
  - Vascular device infection [Recovered/Resolved]

NARRATIVE: CASE EVENT DATE: 20161122
